FAERS Safety Report 23252403 (Version 1)
Quarter: 2023Q4

REPORT INFORMATION
  Report Type: Spontaneous
  Country: US (occurrence: US)
  Receive Date: 20231201
  Receipt Date: 20231201
  Transmission Date: 20240109
  Serious: Yes (Hospitalization)
  Sender: FDA-Public Use
  Company Number: US-BRISTOL-MYERS SQUIBB COMPANY-2023-171831

PATIENT
  Age: 64 Year
  Sex: Female

DRUGS (1)
  1. POMALYST [Suspect]
     Active Substance: POMALIDOMIDE
     Indication: Plasma cell myeloma
     Dosage: TAKE 1 CAPSULE (2 MG TOTAL) BY MOUTH DAILY ON DAYS 1-21. THEN DO NOT TAKE FOR 7 DAYS
     Route: 048
     Dates: start: 20211210

REACTIONS (1)
  - Hospitalisation [Not Recovered/Not Resolved]
